FAERS Safety Report 5467496-8 (Version None)
Quarter: 2007Q3

REPORT INFORMATION
  Report Type: 
  Country: None (occurrence: None)
  Receive Date: 20070925
  Receipt Date: 20070918
  Transmission Date: 20080115
  Serious: Yes (Congenital Anomaly)
  Sender: FDA-Public Use
  Company Number: HK-ROXANE LABORATORIES, INC-2007-BP-21200RO

PATIENT
  Age: 1 Year
  Sex: Male

DRUGS (4)
  1. TAMOXIFEN CITRATE [Suspect]
     Route: 064
  2. CARMUSTINE [Suspect]
     Route: 064
  3. DACARBAZINE [Suspect]
     Route: 064
  4. CISPLATIN [Suspect]
     Route: 064

REACTIONS (4)
  - HYPERMETROPIA [None]
  - MICROPHTHALMOS [None]
  - NYSTAGMUS [None]
  - VISUAL ACUITY REDUCED [None]
